FAERS Safety Report 16361170 (Version 1)
Quarter: 2019Q3

REPORT INFORMATION
  Report Type: Spontaneous
  Country: US (occurrence: US)
  Receive Date: 20190524
  Receipt Date: 20190524
  Transmission Date: 20191004
  Serious: Yes (Death, Life-Threatening, Hospitalization)
  Sender: FDA-Public Use
  Company Number: None

PATIENT
  Age: 67 Year
  Sex: Female
  Weight: 103 kg

DRUGS (1)
  1. TAXOTERE [Suspect]
     Active Substance: DOCETAXEL
     Indication: BREAST CANCER
     Dosage: ?          OTHER FREQUENCY:ONCE;?
     Route: 041
     Dates: start: 20190510, end: 20190510

REACTIONS (11)
  - Acute kidney injury [None]
  - Transfusion [None]
  - Colitis [None]
  - Respiratory failure [None]
  - Septic shock [None]
  - Multiple organ dysfunction syndrome [None]
  - Coagulopathy [None]
  - Ejection fraction decreased [None]
  - Sinus tachycardia [None]
  - Renal tubular necrosis [None]
  - Acidosis [None]

NARRATIVE: CASE EVENT DATE: 20190520
